FAERS Safety Report 5834817-3 (Version None)
Quarter: 2008Q3

REPORT INFORMATION
  Report Type: 
  Country: None (occurrence: None)
  Receive Date: 20080805
  Receipt Date: 20080725
  Transmission Date: 20090109
  Serious: Yes (Hospitalization)
  Sender: FDA-Public Use
  Company Number: US-ELI_LILLY_AND_COMPANY-US200807005274

PATIENT
  Sex: Male
  Weight: 113.38 kg

DRUGS (13)
  1. BYETTA [Suspect]
     Indication: TYPE 2 DIABETES MELLITUS
     Dosage: 5 UG, 2/D
     Route: 058
     Dates: start: 20050101, end: 20050101
  2. BYETTA [Suspect]
     Dosage: 10 UG, 2/D
     Route: 058
     Dates: start: 20050101, end: 20060101
  3. BYETTA [Suspect]
     Dosage: 5 UG, 2/D
     Route: 058
     Dates: start: 20060101, end: 20061201
  4. BYETTA [Suspect]
     Dosage: 5 UG, 2/D
     Route: 058
     Dates: start: 20080701
  5. COREG [Concomitant]
     Dosage: 80 MG, 2/D
     Dates: start: 20060101
  6. LIPITOR [Concomitant]
     Dosage: 40 UNK, DAILY (1/D)
     Dates: start: 20060101
  7. ASPIRIN [Concomitant]
     Dosage: 81 MG, DAILY (1/D)
     Dates: start: 19970101
  8. AVAPRO [Concomitant]
     Dosage: 150 UNK, DAILY (1/D)
     Dates: start: 19970101
  9. LANTUS [Concomitant]
     Dosage: 30 U, EACH EVENING
  10. NEXIUM [Concomitant]
     Dosage: UNK, DAILY (1/D)
  11. GLUCOPHAGE [Concomitant]
     Dosage: 1000 MG, 2/D
  12. FISH OIL [Concomitant]
     Dosage: UNK, UNKNOWN
  13. FOLIC ACID [Concomitant]
     Dosage: UNK, UNKNOWN

REACTIONS (4)
  - ANOREXIA [None]
  - INCISIONAL DRAINAGE [None]
  - POST PROCEDURAL INFECTION [None]
  - VASCULAR GRAFT [None]
